FAERS Safety Report 8775970 (Version 1)
Quarter: 2012Q4

REPORT INFORMATION
  Report Type: 
  Country: US (occurrence: US)
  Receive Date: 20120910
  Receipt Date: 20120910
  Transmission Date: 20130627
  Serious: Yes (Life-Threatening, Hospitalization, Disabling, Other)
  Sender: FDA-Public Use
  Company Number: US-009507513-2010SP036928

PATIENT

DRUGS (3)
  1. NUVARING [Suspect]
     Indication: CONTRACEPTION
     Dates: start: 200703, end: 20080415
  2. NUVARING [Suspect]
     Indication: POLYCYSTIC OVARIES
  3. METFORMIN [Concomitant]
     Indication: POLYCYSTIC OVARIES
     Dosage: TAKEN SINCE AGE 16

REACTIONS (23)
  - Pneumonia [Unknown]
  - Acute respiratory failure [Recovered/Resolved]
  - Intracranial pressure increased [Recovering/Resolving]
  - Hepatic steatosis [Unknown]
  - Partial seizures [Unknown]
  - Intracranial venous sinus thrombosis [Recovered/Resolved with Sequelae]
  - Ischaemic stroke [Recovered/Resolved with Sequelae]
  - Subarachnoid haemorrhage [Recovered/Resolved]
  - Subdural haemorrhage [Unknown]
  - Hypertension [Recovering/Resolving]
  - Cardiac disorder [Unknown]
  - Foot fracture [Unknown]
  - Complex regional pain syndrome [Unknown]
  - Nasal septum deviation [Unknown]
  - Muscle contracture [Unknown]
  - Sinusitis [Unknown]
  - Dysmenorrhoea [Unknown]
  - Depression [Not Recovered/Not Resolved]
  - Hepatic enzyme increased [Recovered/Resolved]
  - Ischaemic hepatitis [Recovered/Resolved]
  - Cerebral infarction [Unknown]
  - Convulsion [Recovered/Resolved]
  - Hyperglycaemia [Recovered/Resolved]
